FAERS Safety Report 20027768 (Version 1)
Quarter: 2021Q4

REPORT INFORMATION
  Report Type: Spontaneous
  Country: US (occurrence: US)
  Receive Date: 20211103
  Receipt Date: 20211103
  Transmission Date: 20220303
  Serious: Yes (Death, Other)
  Sender: FDA-Public Use
  Company Number: US-AMGEN-USASP2021169237

PATIENT

DRUGS (1)
  1. DARBEPOETIN ALFA [Suspect]
     Active Substance: DARBEPOETIN ALFA
     Indication: Nervous system disorder prophylaxis
     Dosage: 1 MG/KG
     Route: 042

REACTIONS (8)
  - Death [Fatal]
  - Cerebrovascular accident [Unknown]
  - Spinal cord infarction [Unknown]
  - Atrial fibrillation [Unknown]
  - Myocardial infarction [Unknown]
  - Delirium [Unknown]
  - Haemorrhage [Unknown]
  - Infection [Unknown]
